FAERS Safety Report 7552536-2 (Version None)
Quarter: 2011Q2

REPORT INFORMATION
  Report Type: 
  Country: None (occurrence: None)
  Receive Date: 20110616
  Receipt Date: 20110609
  Transmission Date: 20111010
  Serious: Yes (Death, Hospitalization)
  Sender: FDA-Public Use
  Company Number: US-CELGENEUS-163-20785-11061643

PATIENT
  Age: 79 Year
  Sex: Female

DRUGS (15)
  1. PLATELETS [Concomitant]
     Indication: PANCYTOPENIA
     Dosage: 1 UNIT
     Route: 051
     Dates: start: 20110101, end: 20110101
  2. MORPHINE [Concomitant]
     Route: 065
  3. ASPIRIN [Concomitant]
     Route: 065
  4. DEXAMETHASONE [Concomitant]
     Indication: MULTIPLE MYELOMA
     Route: 065
     Dates: start: 20110114
  5. THALOMID [Suspect]
  6. WHOLE BLOOD [Concomitant]
     Indication: PANCYTOPENIA
     Dosage: 3 UNITS
     Route: 051
     Dates: start: 20110101, end: 20110101
  7. APAP W/ CODEINE [Concomitant]
     Route: 065
  8. CYCLOBENZAPRINE [Concomitant]
     Route: 065
  9. SIMVASTATIN [Concomitant]
     Route: 065
  10. ALLOPURINOL [Concomitant]
     Route: 065
  11. THALOMID [Suspect]
     Indication: MULTIPLE MYELOMA
     Route: 048
     Dates: start: 20110114
  12. CEFTRIAZONE [Concomitant]
     Indication: ESCHERICHIA TEST POSITIVE
     Route: 065
     Dates: start: 20110101
  13. ZOLPIDEM [Concomitant]
     Route: 065
  14. ALBUTEROL SULFATE AUTOHALER [Concomitant]
     Route: 065
  15. IBUPROFEN [Concomitant]
     Route: 065

REACTIONS (2)
  - ASTHENIA [None]
  - RESPIRATORY FAILURE [None]
